FAERS Safety Report 7439255-8 (Version None)
Quarter: 2011Q2

REPORT INFORMATION
  Report Type: 
  Country: None (occurrence: None)
  Receive Date: 20110421
  Receipt Date: 20110421
  Transmission Date: 20111010
  Serious: Yes (Life-Threatening)
  Sender: FDA-Public Use
  Company Number: None

PATIENT
  Age: 38 Year
  Sex: Male
  Weight: 102.0593 kg

DRUGS (1)
  1. ZOLPIDEM [Suspect]
     Indication: INSOMNIA
     Dosage: 1 TABLET 10 MG 1 DAILY AT BEDTIME PO
     Route: 048
     Dates: start: 20091016, end: 20110320

REACTIONS (11)
  - SOMNAMBULISM [None]
  - CONTUSION [None]
  - PRODUCT LABEL ISSUE [None]
  - FEAR [None]
  - ROAD TRAFFIC ACCIDENT [None]
  - MYDRIASIS [None]
  - ALCOHOL USE [None]
  - IMPRISONMENT [None]
  - IMPAIRED DRIVING ABILITY [None]
  - ABNORMAL BEHAVIOUR [None]
  - AMNESIA [None]
